FAERS Safety Report 9750899 (Version 1)
Quarter: 2013Q4

REPORT INFORMATION
  Report Type: Spontaneous
  Country: US (occurrence: US)
  Receive Date: 20131212
  Receipt Date: 20131212
  Transmission Date: 20140711
  Serious: No
  Sender: FDA-Public Use
  Company Number: US-TEVA-401988USA

PATIENT
  Age: 28 Year
  Sex: Female
  Weight: 59.02 kg

DRUGS (4)
  1. PARAGARD 380A [Suspect]
     Indication: CONTRACEPTION
     Route: 015
     Dates: start: 20130304, end: 20130424
  2. SPIRONOLACTONE [Concomitant]
     Indication: ACNE
  3. MINOCYCLINE [Concomitant]
     Indication: ACNE
  4. ADDERALL [Concomitant]
     Indication: ATTENTION DEFICIT/HYPERACTIVITY DISORDER

REACTIONS (2)
  - Device expulsion [Recovered/Resolved]
  - Dyspareunia [Unknown]
